FAERS Safety Report 4524824-5 (Version None)
Quarter: 2004Q4

REPORT INFORMATION
  Report Type: 
  Country: None (occurrence: None)
  Receive Date: 20041213
  Receipt Date: 20040723
  Transmission Date: 20050328
  Serious: Yes (Hospitalization, Other)
  Sender: FDA-Public Use
  Company Number: US-BRISTOL-MYERS SQUIBB COMPANY-12650123

PATIENT
  Age: 55 Year
  Sex: Female

DRUGS (7)
  1. CARBOPLATIN [Suspect]
     Indication: OVARIAN CANCER
     Dosage: 450 MG Q3W IV 31JUL2003-09OCT2003 (ON-STUDY) 450 MG Q3W IV 20-NOV-2003-(OFF STUDY)
     Route: 042
     Dates: start: 20031120, end: 20031120
  2. PACLITAXEL [Suspect]
     Indication: OVARIAN CANCER
     Dosage: 350 MG Q3W IV 31JUL2003-09OCT2003 (ON STUDY) 350 MG Q3W IV 20-NOV-2003 (OFF STUDY)
     Route: 042
     Dates: start: 20031120, end: 20031120
  3. INTERFERON GAMMA [Suspect]
     Indication: OVARIAN CANCER
     Dosage: THERAPY FROM 31-JUL-2003 TO 27-OCT-2003
     Route: 058
     Dates: start: 20031027, end: 20031027
  4. DILANTIN [Concomitant]
     Dates: start: 19700101
  5. PROZAC [Concomitant]
     Dates: start: 19830101
  6. WELLBUTRIN [Concomitant]
     Dates: start: 19930101
  7. SYNTHROID [Concomitant]
     Dates: start: 19880101

REACTIONS (2)
  - NEUTROPENIA [None]
  - PULMONARY EMBOLISM [None]
